FAERS Safety Report 17797329 (Version 1)
Quarter: 2020Q2

REPORT INFORMATION
  Report Type: Spontaneous
  Country: US (occurrence: US)
  Receive Date: 20200515
  Receipt Date: 20200515
  Transmission Date: 20200714
  Serious: Yes (Other)
  Sender: FDA-Public Use
  Company Number: None

PATIENT
  Age: 76 Year
  Sex: Male
  Weight: 82.8 kg

DRUGS (15)
  1. METOPROLOL SUCCINATE 25MG [Concomitant]
     Active Substance: METOPROLOL SUCCINATE
  2. PROCHLORPERAZINE 10MG [Concomitant]
  3. VITAMIN D 25MCG [Concomitant]
  4. MULTIVITAMIN [Concomitant]
     Active Substance: VITAMINS
  5. NORVASC [Concomitant]
     Active Substance: AMLODIPINE BESYLATE
  6. TYLENOL [Concomitant]
     Active Substance: ACETAMINOPHEN
  7. CALCIUM CITRATE +D 315-250MG [Concomitant]
  8. STIVARGA [Suspect]
     Active Substance: REGORAFENIB
     Indication: COLON CANCER
     Dosage: ?          OTHER FREQUENCY:QD ON WEEK 2;?
     Route: 048
     Dates: start: 20200324, end: 20200515
  9. OMEPRAZOLE 20MG [Concomitant]
     Active Substance: OMEPRAZOLE
  10. LIDOCAINE 5% [Concomitant]
     Active Substance: LIDOCAINE
  11. ELIQUIS [Concomitant]
     Active Substance: APIXABAN
  12. PREDNISONE 10MG [Concomitant]
     Active Substance: PREDNISONE
  13. STIVARGA [Suspect]
     Active Substance: REGORAFENIB
     Indication: COLON CANCER
     Dosage: ?          OTHER FREQUENCY:QD FOR WEEK 1;?
     Route: 048
     Dates: start: 20200324, end: 20200515
  14. FLECAINIDE 50MG [Concomitant]
     Active Substance: FLECAINIDE
  15. ONDANSETRON 8MG [Concomitant]
     Active Substance: ONDANSETRON

REACTIONS (1)
  - Hospice care [None]

NARRATIVE: CASE EVENT DATE: 20200515
